FAERS Safety Report 9384550 (Version 4)
Quarter: 2015Q4

REPORT INFORMATION
  Report Type: Report from Study
  Country: US (occurrence: US)
  Receive Date: 20130705
  Receipt Date: 20151030
  Transmission Date: 20160305
  Serious: Yes (Other)
  Sender: FDA-Public Use
  Company Number: US-ROCHE-1243018

PATIENT
  Sex: Female

DRUGS (5)
  1. LEVEMIR [Concomitant]
     Active Substance: INSULIN DETEMIR
  2. PREDNISONE. [Concomitant]
     Active Substance: PREDNISONE
  3. AVASTIN [Suspect]
     Active Substance: BEVACIZUMAB
     Indication: VENOUS OCCLUSION
     Route: 065
     Dates: start: 20130604
  4. LUCENTIS [Suspect]
     Active Substance: RANIBIZUMAB
     Indication: VENOUS OCCLUSION
     Route: 050
     Dates: start: 20130604
  5. ORENCIA [Concomitant]
     Active Substance: ABATACEPT

REACTIONS (10)
  - Eye discharge [Not Recovered/Not Resolved]
  - Eye irritation [Not Recovered/Not Resolved]
  - Retinal vascular disorder [Not Recovered/Not Resolved]
  - Pain [Not Recovered/Not Resolved]
  - Cystoid macular oedema [Not Recovered/Not Resolved]
  - Vitreous floaters [Not Recovered/Not Resolved]
  - Vision blurred [Not Recovered/Not Resolved]
  - Visual impairment [Not Recovered/Not Resolved]
  - No therapeutic response [Unknown]
  - Retinal haemorrhage [Recovered/Resolved]
